FAERS Safety Report 6587855-X (Version None)
Quarter: 2010Q1

REPORT INFORMATION
  Report Type: 
  Country: None (occurrence: None)
  Receive Date: 20100218
  Receipt Date: 20100208
  Transmission Date: 20100710
  Serious: Yes (Hospitalization, Other)
  Sender: FDA-Public Use
  Company Number: PHEH2007US11514

PATIENT
  Sex: Female

DRUGS (10)
  1. AREDIA [Suspect]
     Dosage: UNK
  2. ZOMETA [Suspect]
     Dosage: UNK
  3. THALIDOMIDE [Suspect]
     Indication: MULTIPLE MYELOMA
     Dosage: 400MG
  4. PAXIL [Concomitant]
     Dosage: 200 MG
  5. PREMARIN [Concomitant]
     Dosage: .625 MG
  6. VALIUM [Concomitant]
     Dosage: 5 MG
  7. SYNTHROID [Concomitant]
     Dosage: .1 MG
  8. CLINDAMYCIN [Concomitant]
     Dosage: 150 MG
  9. FUROSEMIDE [Concomitant]
     Dosage: 20 MG
  10. BLOOD AND RELATED PRODUCTS [Concomitant]
     Dosage: UNK
     Dates: start: 20011224

REACTIONS (23)
  - ABSCESS DRAINAGE [None]
  - ANHEDONIA [None]
  - ANXIETY [None]
  - ASTHENIA [None]
  - BACK PAIN [None]
  - CHEST PAIN [None]
  - DISABILITY [None]
  - DYSPNOEA [None]
  - FATIGUE [None]
  - FISTULA [None]
  - HERPES ZOSTER [None]
  - HYPOAESTHESIA [None]
  - HYPOTHYROIDISM [None]
  - INJURY [None]
  - INTERVERTEBRAL DISC DISORDER [None]
  - MUSCULOSKELETAL DISCOMFORT [None]
  - NEUROPATHY PERIPHERAL [None]
  - OESTROGEN DEFICIENCY [None]
  - OSTEOARTHRITIS [None]
  - OSTEOMYELITIS [None]
  - OSTEONECROSIS [None]
  - PAIN [None]
  - RETINAL DETACHMENT [None]
